FAERS Safety Report 26126099 (Version 1)
Quarter: 2025Q4

REPORT INFORMATION
  Report Type: Spontaneous
  Country: US (occurrence: US)
  Receive Date: 20251205
  Receipt Date: 20251205
  Transmission Date: 20260117
  Serious: Yes (Other)
  Sender: ABBVIE
  Company Number: US-ABBVIE-6576101

PATIENT
  Age: 10 Year
  Sex: Male

DRUGS (2)
  1. VENETOCLAX [Suspect]
     Active Substance: VENETOCLAX
     Indication: Lymphocytic leukaemia
     Dosage: TWO COURSES
     Route: 048
  2. DECITABINE [Suspect]
     Active Substance: DECITABINE
     Indication: Lymphocytic leukaemia
     Dosage: TWO COURSES
     Route: 065

REACTIONS (2)
  - Minimal residual disease [Unknown]
  - Off label use [Unknown]
